FAERS Safety Report 17117931 (Version 2)
Quarter: 2019Q4

REPORT INFORMATION
  Report Type: Report from Study
  Country: US (occurrence: US)
  Receive Date: 20191205
  Receipt Date: 20191217
  Transmission Date: 20200122
  Serious: Yes (Hospitalization)
  Sender: FDA-Public Use
  Company Number: US-ACTELION-A-US2019-198583

PATIENT
  Sex: Female
  Weight: 54.88 kg

DRUGS (5)
  1. UPTRAVI [Suspect]
     Active Substance: SELEXIPAG
     Dosage: 800 MCG, BID
     Route: 048
  2. OXYGEN. [Concomitant]
     Active Substance: OXYGEN
     Dosage: 6 L
  3. UPTRAVI [Suspect]
     Active Substance: SELEXIPAG
     Indication: PULMONARY ARTERIAL HYPERTENSION
     Dosage: 600 MCG, BID
     Route: 048
  4. UPTRAVI [Suspect]
     Active Substance: SELEXIPAG
     Dosage: 1000 MCG, BID
     Route: 048
  5. OXYGEN. [Concomitant]
     Active Substance: OXYGEN
     Dosage: 8 L

REACTIONS (13)
  - Pulmonary arterial pressure abnormal [Recovering/Resolving]
  - Oedema peripheral [Unknown]
  - Upper-airway cough syndrome [Unknown]
  - Cough [Unknown]
  - Lacrimation increased [Unknown]
  - Rales [Unknown]
  - Oxygen consumption increased [Unknown]
  - Pneumonia [Unknown]
  - Cardiac failure congestive [Unknown]
  - Oxygen saturation decreased [Recovering/Resolving]
  - Breath sounds abnormal [Unknown]
  - Gastrointestinal sounds abnormal [Unknown]
  - Dyspnoea [Recovering/Resolving]
